FAERS Safety Report 6184172-7 (Version None)
Quarter: 2009Q2

REPORT INFORMATION
  Report Type: 
  Country: None (occurrence: None)
  Receive Date: 20090508
  Receipt Date: 20090505
  Transmission Date: 20091009
  Serious: Yes (Death, Life-Threatening, Hospitalization)
  Sender: FDA-Public Use
  Company Number: DE-BAYER-200911957GPV

PATIENT
  Age: 48 Year
  Sex: Male
  Weight: 82 kg

DRUGS (8)
  1. NEXAVAR [Suspect]
     Indication: ACUTE MYELOID LEUKAEMIA RECURRENT
     Route: 048
     Dates: start: 20081128, end: 20090121
  2. PANTOPRAZOLE SODIUM [Concomitant]
     Indication: DRUG USE FOR UNKNOWN INDICATION
     Route: 065
  3. DECORTIN H [Concomitant]
     Indication: DRUG USE FOR UNKNOWN INDICATION
     Route: 065
  4. LASIX [Concomitant]
     Indication: DRUG USE FOR UNKNOWN INDICATION
     Route: 065
  5. POSACONAZOLE [Concomitant]
     Indication: DRUG USE FOR UNKNOWN INDICATION
     Dosage: TOTAL DAILY DOSE: 800 MG
     Route: 065
  6. ALLOPURINOL [Concomitant]
     Indication: DRUG USE FOR UNKNOWN INDICATION
     Route: 065
  7. TAVANIC [Concomitant]
     Indication: DRUG USE FOR UNKNOWN INDICATION
     Route: 065
  8. COTRIM [Concomitant]
     Indication: DRUG USE FOR UNKNOWN INDICATION
     Route: 065

REACTIONS (5)
  - EPIDERMOLYSIS [None]
  - ERYTHEMA [None]
  - GRAFT VERSUS HOST DISEASE [None]
  - LEUKAEMIA RECURRENT [None]
  - MUCOSAL INFLAMMATION [None]
